FAERS Safety Report 10358803 (Version 1)
Quarter: 2014Q3

REPORT INFORMATION
  Report Type: Spontaneous
  Country: US (occurrence: None)
  Receive Date: 20140730
  Receipt Date: 20140730
  Transmission Date: 20150326
  Serious: Yes (Disabling, Other)
  Sender: FDA-Public Use
  Company Number: None

PATIENT
  Age: 30 Year

DRUGS (2)
  1. CIPRO [Suspect]
     Active Substance: CIPROFLOXACIN HYDROCHLORIDE
     Indication: KIDNEY INFECTION
     Dosage: 5-6 YEARS, VARIOUS
  2. CIPRO [Suspect]
     Active Substance: CIPROFLOXACIN HYDROCHLORIDE
     Indication: URINARY TRACT INFECTION
     Dosage: 5-6 YEARS, VARIOUS

REACTIONS (7)
  - Nephrolithiasis [None]
  - Pain [None]
  - Swelling face [None]
  - Malaise [None]
  - Headache [None]
  - Gastrointestinal disorder [None]
  - Swelling [None]
